FAERS Safety Report 7560020-5 (Version None)
Quarter: 2011Q2

REPORT INFORMATION
  Report Type: 
  Country: None (occurrence: None)
  Receive Date: 20110621
  Receipt Date: 20110614
  Transmission Date: 20111010
  Serious: Yes (Death)
  Sender: FDA-Public Use
  Company Number: PHHY2011US52524

PATIENT
  Sex: Female

DRUGS (1)
  1. TOBI [Suspect]
     Indication: BRONCHIECTASIS
     Dosage: 300 MG, BID FOR 28 DAYS ON, 28 DAYS OFF
     Dates: start: 20071001

REACTIONS (2)
  - DISEASE PROGRESSION [None]
  - BRONCHIECTASIS [None]
